FAERS Safety Report 11977828 (Version 1)
Quarter: 2016Q1

REPORT INFORMATION
  Report Type: Spontaneous
  Country: US (occurrence: US)
  Receive Date: 20160129
  Receipt Date: 20160129
  Transmission Date: 20160526
  Serious: Yes (Hospitalization)
  Sender: FDA-Public Use
  Company Number: US-FRESENIUS MEDICAL CARE NORTH AMERICA-1047095

PATIENT
  Age: 39 Year
  Sex: Male
  Weight: 62 kg

DRUGS (1)
  1. DELFLEX [Suspect]
     Active Substance: CALCIUM CHLORIDE\DEXTROSE\MAGNESIUM CHLORIDE\SODIUM CHLORIDE\SODIUM LACTATE
     Indication: END STAGE RENAL DISEASE
     Route: 033

REACTIONS (9)
  - Staphylococcal infection [None]
  - Purulence [None]
  - Fluid overload [Unknown]
  - Electrolyte imbalance [Unknown]
  - Wrong technique in product usage process [None]
  - Peritonitis [Unknown]
  - Hyponatraemia [None]
  - Device malfunction [None]
  - Hyperkalaemia [None]

NARRATIVE: CASE EVENT DATE: 20151211
